FAERS Safety Report 7662155-5 (Version None)
Quarter: 2011Q3

REPORT INFORMATION
  Report Type: 
  Country: None (occurrence: None)
  Receive Date: 20110805
  Receipt Date: 20101203
  Transmission Date: 20111222
  Serious: No
  Sender: FDA-Public Use
  Company Number: US-ABBOTT-10P-163-0689444-00

PATIENT
  Sex: Male
  Weight: 104.42 kg

DRUGS (6)
  1. NIASPAN [Suspect]
     Indication: PRODUCT USED FOR UNKNOWN INDICATION
     Dates: start: 20101025
  2. VITAMIN TAB [Concomitant]
     Indication: PRODUCT USED FOR UNKNOWN INDICATION
  3. THYROID MEDICINE [Concomitant]
     Indication: PRODUCT USED FOR UNKNOWN INDICATION
  4. DIABETES MEDICINE [Concomitant]
     Indication: PRODUCT USED FOR UNKNOWN INDICATION
  5. BLOOD PRESSURE MEDICINE [Concomitant]
     Indication: PRODUCT USED FOR UNKNOWN INDICATION
  6. NIASPAN [Suspect]
     Dates: end: 20101108

REACTIONS (2)
  - RASH PRURITIC [None]
  - ERYTHEMA [None]
